FAERS Safety Report 5077921-2 (Version None)
Quarter: 2006Q3

REPORT INFORMATION
  Report Type: 
  Country: None (occurrence: None)
  Receive Date: 20060808
  Receipt Date: 20060725
  Transmission Date: 20061208
  Serious: Yes (Hospitalization)
  Sender: FDA-Public Use
  Company Number: S06-CAN-03107-01

PATIENT
  Age: 77 Year
  Sex: Male

DRUGS (2)
  1. MEMANTINE HCL [Suspect]
     Indication: DEMENTIA ALZHEIMER'S TYPE
     Dosage: 10 MG QD PO
     Route: 048
     Dates: start: 20060401, end: 20060707
  2. DILANTIN [Concomitant]

REACTIONS (2)
  - DRUG LEVEL INCREASED [None]
  - FALL [None]
